FAERS Safety Report 6529068-3 (Version None)
Quarter: 2009Q4

REPORT INFORMATION
  Report Type: 
  Country: None (occurrence: None)
  Receive Date: 20091223
  Receipt Date: 20091218
  Transmission Date: 20100525
  Serious: Yes (Other)
  Sender: FDA-Public Use
  Company Number: TCI2009A05063

PATIENT
  Age: 62 Year
  Sex: Male

DRUGS (8)
  1. LANSOPRAZOLE [Suspect]
     Indication: CAROTID ARTERY STENOSIS
     Dosage: 15 MG (15 MG, 1 IN  1D) PER ORAL
     Route: 048
     Dates: start: 20091015, end: 20091112
  2. LANSOPRAZOLE [Suspect]
     Indication: LACUNAR INFARCTION
     Dosage: 15 MG (15 MG, 1 IN  1D) PER ORAL
     Route: 048
     Dates: start: 20091015, end: 20091112
  3. LANSOPRAZOLE [Suspect]
     Indication: REFLUX OESOPHAGITIS
     Dosage: 15 MG (15 MG, 1 IN  1D) PER ORAL
     Route: 048
     Dates: start: 20091015, end: 20091112
  4. PLAVIS (CLOPIDOGREL SULFATE) [Concomitant]
  5. DOXAZOSIN MESYLATE [Concomitant]
  6. NORVASC [Concomitant]
     Dates: start: 20080313
  7. NATRIX (INDAPAMIDE) [Concomitant]
  8. LIPITOR [Concomitant]

REACTIONS (8)
  - ERYTHEMA [None]
  - FACE OEDEMA [None]
  - LARYNGEAL OEDEMA [None]
  - OROPHARYNGEAL PAIN [None]
  - PRURITUS [None]
  - RASH GENERALISED [None]
  - RESPIRATORY FAILURE [None]
  - VOMITING [None]
